FAERS Safety Report 7422159-4 (Version None)
Quarter: 2011Q2

REPORT INFORMATION
  Report Type: 
  Country: None (occurrence: None)
  Receive Date: 20110418
  Receipt Date: 20101101
  Transmission Date: 20111010
  Serious: Yes (Other)
  Sender: FDA-Public Use
  Company Number: US-BAYER-201024712NA

PATIENT
  Age: 23 Year
  Sex: Female
  Weight: 58.503 kg

DRUGS (9)
  1. YAZ [Suspect]
     Indication: PRODUCT USED FOR UNKNOWN INDICATION
     Route: 048
  2. SINGULAIR [Concomitant]
     Indication: ASTHMA
     Dosage: UNK
     Dates: start: 19900101
  3. ALBUTEROL [Concomitant]
     Indication: ASTHMA
     Dosage: UNK
     Dates: start: 19900101
  4. SPIRIVA [Concomitant]
     Dosage: UNK
     Dates: start: 19900101
  5. UNKNOWN [Concomitant]
  6. OCELLA [Suspect]
     Indication: PRODUCT USED FOR UNKNOWN INDICATION
  7. YASMIN [Suspect]
     Indication: PRODUCT USED FOR UNKNOWN INDICATION
  8. ASMANEX TWISTHALER [Concomitant]
     Dosage: UNK
     Dates: start: 19900101
  9. PROAIR HFA [Concomitant]
     Dosage: UNK
     Dates: start: 19900101

REACTIONS (1)
  - DEEP VEIN THROMBOSIS [None]
